FAERS Safety Report 13265474 (Version 1)
Quarter: 2017Q1

REPORT INFORMATION
  Report Type: Spontaneous
  Country: CA (occurrence: CA)
  Receive Date: 20170223
  Receipt Date: 20170223
  Transmission Date: 20170428
  Serious: Yes (Hospitalization)
  Sender: FDA-Public Use
  Company Number: CA-PFIZER INC-2017074464

PATIENT
  Age: 34 Year
  Sex: Female

DRUGS (1)
  1. REVATIO [Suspect]
     Active Substance: SILDENAFIL CITRATE
     Indication: PULMONARY ARTERIAL HYPERTENSION
     Dosage: 40MG, THREE TIMES A DAY
     Route: 048
     Dates: start: 20010101

REACTIONS (3)
  - Left ventricular failure [Unknown]
  - Right ventricular failure [Unknown]
  - Product use issue [Unknown]

NARRATIVE: CASE EVENT DATE: 20010101
